FAERS Safety Report 24735851 (Version 2)
Quarter: 2024Q4

REPORT INFORMATION
  Report Type: Report from Study
  Country: CA (occurrence: CA)
  Receive Date: 20241216
  Receipt Date: 20241218
  Transmission Date: 20250115
  Serious: No
  Sender: ROCHE
  Company Number: CA-ROCHE-10000151010

PATIENT
  Sex: Male

DRUGS (3)
  1. OCREVUS [Suspect]
     Active Substance: OCRELIZUMAB
     Indication: Relapsing-remitting multiple sclerosis
     Dosage: THEN 600 MG EVERY 6 MONTH.
     Route: 042
     Dates: start: 20200106
  2. DALFAMPRIDINE [Concomitant]
     Active Substance: DALFAMPRIDINE
  3. BISOPROLOL [Concomitant]
     Active Substance: BISOPROLOL

REACTIONS (8)
  - Brain fog [Recovering/Resolving]
  - Multiple sclerosis relapse [Recovering/Resolving]
  - COVID-19 [Recovered/Resolved]
  - Pneumonia [Recovered/Resolved]
  - Delirium [Recovered/Resolved]
  - Temperature intolerance [Recovering/Resolving]
  - Pain of skin [Not Recovered/Not Resolved]
  - Nausea [Unknown]
